FAERS Safety Report 7376484-6 (Version None)
Quarter: 2011Q1

REPORT INFORMATION
  Report Type: 
  Country: None (occurrence: None)
  Receive Date: 20110317
  Receipt Date: 20110303
  Transmission Date: 20110831
  Serious: No
  Sender: FDA-Public Use
  Company Number: 2011-00084

PATIENT
  Age: 83 Year
  Sex: Male
  Weight: 90.7194 kg

DRUGS (11)
  1. LORAZEPAM [Concomitant]
  2. METFORNIN [Concomitant]
  3. LYRICA [Concomitant]
  4. PLAVIX [Concomitant]
  5. ZICAM COLD REMEDY PLUS LIQUI-LOZ [Suspect]
     Dosage: AS DIRECTED X 2 DAYS
     Dates: start: 20110302, end: 20110303
  6. BENZONATATE [Concomitant]
  7. CARVEDILOL [Concomitant]
  8. ASPIRIN [Concomitant]
  9. NEXIUM [Concomitant]
  10. ZANTAC [Concomitant]
  11. LOVASTATIN [Concomitant]

REACTIONS (1)
  - AGEUSIA [None]
